FAERS Safety Report 6909785-3 (Version None)
Quarter: 2010Q3

REPORT INFORMATION
  Report Type: 
  Country: None (occurrence: None)
  Receive Date: 20100806
  Receipt Date: 20100728
  Transmission Date: 20110219
  Serious: Yes (Hospitalization)
  Sender: FDA-Public Use
  Company Number: 2006BI012227

PATIENT
  Age: 63 Year
  Sex: Female

DRUGS (4)
  1. AVONEX [Suspect]
     Indication: MULTIPLE SCLEROSIS
     Route: 030
     Dates: start: 20030901
  2. AVONEX [Suspect]
     Route: 030
     Dates: start: 20030901
  3. AVONEX [Suspect]
     Route: 030
     Dates: start: 20030901
  4. AVONEX [Suspect]
     Route: 030
     Dates: start: 19990801, end: 20030801

REACTIONS (4)
  - ARTHRITIS [None]
  - FALL [None]
  - JOINT INJURY [None]
  - MENISCUS LESION [None]
